FAERS Safety Report 9415823 (Version 1)
Quarter: 2013Q3

REPORT INFORMATION
  Report Type: Spontaneous
  Country: US (occurrence: US)
  Receive Date: 20130724
  Receipt Date: 20130724
  Transmission Date: 20140515
  Serious: Yes (Other)
  Sender: FDA-Public Use
  Company Number: US-JNJFOC-20130707858

PATIENT
  Age: 50 Year
  Sex: Male
  Weight: 77.11 kg

DRUGS (7)
  1. ZYRTEC TABLETS (OTC) 10MG [Suspect]
     Route: 048
  2. ZYRTEC TABLETS (OTC) 10MG [Suspect]
     Indication: MULTIPLE ALLERGIES
     Dosage: 2 TABLETS
     Route: 048
     Dates: start: 20130703, end: 20130703
  3. LEVOTHYROXINE [Concomitant]
     Indication: HYPOTHYROIDISM
     Route: 065
     Dates: start: 2006
  4. VENLAFAXINE [Concomitant]
     Indication: DEPRESSION
     Route: 065
     Dates: start: 2006
  5. LISINOPRIL [Concomitant]
     Indication: HYPERTENSION
     Route: 065
     Dates: start: 2006
  6. ATENOLOL [Concomitant]
     Indication: HYPERTENSION
     Route: 065
     Dates: start: 2006
  7. ARIPIPRAZOLE [Concomitant]
     Indication: DEPRESSION
     Route: 065
     Dates: start: 2006

REACTIONS (2)
  - Drug screen positive [Unknown]
  - Overdose [Unknown]
